FAERS Safety Report 9275719 (Version 1)
Quarter: 2013Q2

REPORT INFORMATION
  Report Type: Spontaneous
  Country: US (occurrence: None)
  Receive Date: 20130502
  Receipt Date: 20130502
  Transmission Date: 20140414
  Serious: No
  Sender: FDA-Public Use
  Company Number: None

PATIENT
  Age: 12 Year
  Sex: Female
  Weight: 28.12 kg

DRUGS (1)
  1. OXCARBAZEPINE [Suspect]
     Indication: IMPULSE-CONTROL DISORDER
     Dosage: 4ML QAM PER TUBE ; 3ML QHS PER TUBE
     Dates: start: 20130401

REACTIONS (4)
  - Drug ineffective [None]
  - Condition aggravated [None]
  - Product substitution issue [None]
  - General symptom [None]
